FAERS Safety Report 7095941-3 (Version None)
Quarter: 2010Q4

REPORT INFORMATION
  Report Type: 
  Country: None (occurrence: None)
  Receive Date: 20101102
  Receipt Date: 20101025
  Transmission Date: 20110411
  Serious: Yes (Hospitalization)
  Sender: FDA-Public Use
  Company Number: 2010SP056771

PATIENT
  Age: 73 Year
  Sex: Female

DRUGS (9)
  1. MIRTAZAPINE [Suspect]
     Indication: PRODUCT USED FOR UNKNOWN INDICATION
     Dosage: 15 MG;QD;PO
     Route: 048
     Dates: start: 20100913
  2. SINTROM [Suspect]
     Indication: PRODUCT USED FOR UNKNOWN INDICATION
     Dosage: 4 MG;QD;PO
     Route: 048
     Dates: start: 19930101, end: 20100927
  3. CERIS [Concomitant]
  4. RISPERDAL [Concomitant]
  5. CONTRAMAL [Concomitant]
  6. EQUANIL [Concomitant]
  7. DAFALGAN [Concomitant]
  8. LEVOTHYROXINE SODIUM [Concomitant]
  9. EXELON [Concomitant]

REACTIONS (7)
  - ANAEMIA [None]
  - BLOOD CREATININE DECREASED [None]
  - DRUG INTERACTION [None]
  - HAEMATOMA [None]
  - INTERNATIONAL NORMALISED RATIO INCREASED [None]
  - OVERDOSE [None]
  - PLATELET COUNT INCREASED [None]
